FAERS Safety Report 8344730-8 (Version None)
Quarter: 2012Q2

REPORT INFORMATION
  Report Type: 
  Country: None (occurrence: None)
  Receive Date: 20120508
  Receipt Date: 20120501
  Transmission Date: 20120825
  Serious: No
  Sender: FDA-Public Use
  Company Number: US-PFIZER INC-2012093592

PATIENT
  Sex: Female

DRUGS (3)
  1. SULFASALAZINE [Suspect]
     Dosage: UNK
  2. AZULFIDINE [Suspect]
     Dosage: UNK
  3. SULFADIAZINE [Suspect]
     Dosage: UNK

REACTIONS (2)
  - SKIN REACTION [None]
  - DRUG HYPERSENSITIVITY [None]
